FAERS Safety Report 5242543-7 (Version None)
Quarter: 2007Q1

REPORT INFORMATION
  Report Type: 
  Country: None (occurrence: None)
  Receive Date: 20070221
  Receipt Date: 20070207
  Transmission Date: 20070707
  Serious: Yes (Other)
  Sender: FDA-Public Use
  Company Number: CA-AVENTIS-200621702GDDC

PATIENT
  Age: 16 Year
  Sex: Male
  Weight: 74 kg

DRUGS (6)
  1. FLAGYL [Suspect]
     Route: 042
     Dates: start: 19981110
  2. MAXERAN [Concomitant]
     Route: 042
     Dates: start: 19981109
  3. CYCLOSPORINE [Concomitant]
     Route: 042
     Dates: start: 19981105
  4. ENOXAPARIN [Concomitant]
     Route: 058
     Dates: start: 19981105
  5. FLUCONAZOLE [Concomitant]
     Route: 042
     Dates: start: 19981109
  6. RANITIDINE [Concomitant]
     Route: 042
     Dates: start: 19981103

REACTIONS (1)
  - HYPERSENSITIVITY [None]
